FAERS Safety Report 14092945 (Version 3)
Quarter: 2018Q1

REPORT INFORMATION
  Report Type: Spontaneous
  Country: PT (occurrence: PT)
  Receive Date: 20171016
  Receipt Date: 20180328
  Transmission Date: 20180508
  Serious: Yes (Other)
  Sender: FDA-Public Use
  Company Number: PT-MYLANLABS-2017M1063007

PATIENT
  Age: 27 Year
  Sex: Female
  Weight: 68 kg

DRUGS (7)
  1. ROPIVACAINE [Suspect]
     Active Substance: ROPIVACAINE
     Indication: ANALGESIC THERAPY
     Dosage: 6 ML AT 0.2%
     Route: 042
  2. ROPIVACAINE [Suspect]
     Active Substance: ROPIVACAINE
     Indication: EPIDURAL ANALGESIA
     Dosage: 6 ML OF 0.2%
     Route: 042
  3. ROPIVACAINE [Suspect]
     Active Substance: ROPIVACAINE
     Dosage: 0.2%
  4. ROPIVACAINE [Suspect]
     Active Substance: ROPIVACAINE
     Dosage: 75 MG, 0.75%
     Route: 042
  5. ROPIVACAINE [Suspect]
     Active Substance: ROPIVACAINE
     Dosage: 15 MG, UNK
     Route: 040
  6. SUFENTANIL [Suspect]
     Active Substance: SUFENTANIL
     Indication: EPIDURAL ANALGESIA
     Dosage: 0.01 MG, UNK, IN 40 ML SALINE SOLUTION AT 6ML/H
     Route: 042
  7. SODIUM CHLORIDE. [Concomitant]
     Active Substance: SODIUM CHLORIDE
     Indication: PRODUCT USED FOR UNKNOWN INDICATION
     Dosage: 40 ML, UNK

REACTIONS (5)
  - Maternal exposure during pregnancy [Recovered/Resolved]
  - Horner^s syndrome [Recovered/Resolved]
  - Complication of pregnancy [Recovered/Resolved]
  - Myositis [Recovered/Resolved]
  - Hypotension [Recovered/Resolved]
